FAERS Safety Report 10488932 (Version 1)
Quarter: 2014Q3

REPORT INFORMATION
  Report Type: Spontaneous
  Country: US (occurrence: None)
  Receive Date: 20140930
  Receipt Date: 20140930
  Transmission Date: 20150326
  Serious: Yes (Other)
  Sender: FDA-Public Use
  Company Number: ADE14-041

PATIENT
  Age: 76 Year
  Sex: Female
  Weight: 80 kg

DRUGS (1)
  1. HEPARIN SODIUM. [Suspect]
     Active Substance: HEPARIN SODIUM
     Indication: CATHETERISATION CARDIAC
     Dosage: 5000 UNITS ONCE
     Route: 042

REACTIONS (2)
  - Drug effect decreased [None]
  - Coagulation time abnormal [None]

NARRATIVE: CASE EVENT DATE: 20140917
